FAERS Safety Report 22928714 (Version 3)
Quarter: 2025Q4

REPORT INFORMATION
  Report Type: Spontaneous
  Country: EU (occurrence: EU)
  Receive Date: 20230911
  Receipt Date: 20251010
  Transmission Date: 20260118
  Serious: Yes (Death, Life-Threatening, Other)
  Sender: AMGEN
  Company Number: EU-AMGEN-GRCSP2023156879

PATIENT

DRUGS (4)
  1. CARFILZOMIB [Suspect]
     Active Substance: CARFILZOMIB
     Indication: Plasma cell myeloma refractory
     Dosage: UNK
     Route: 065
  2. BELANTAMAB MAFODOTIN [Suspect]
     Active Substance: BELANTAMAB MAFODOTIN
     Indication: Plasma cell myeloma refractory
     Dosage: 2.5 MILLIGRAM/KILOGRAM, Q3WK
     Route: 040
  3. LENALIDOMIDE [Concomitant]
     Active Substance: LENALIDOMIDE
     Indication: Plasma cell myeloma refractory
     Dosage: UNK
     Route: 065
  4. BORTEZOMIB [Concomitant]
     Active Substance: BORTEZOMIB
     Indication: Plasma cell myeloma refractory
     Dosage: UNK
     Route: 065

REACTIONS (15)
  - Plasma cell myeloma [Fatal]
  - Infection [Fatal]
  - Accident [Fatal]
  - COVID-19 [Fatal]
  - Death [Fatal]
  - Keratopathy [Recovered/Resolved]
  - Ulcerative keratitis [Unknown]
  - Plasma cell myeloma refractory [Unknown]
  - Septic shock [Unknown]
  - Thrombocytopenia [Unknown]
  - Visual acuity reduced [Unknown]
  - Conjunctival haemorrhage [Unknown]
  - Xerophthalmia [Unknown]
  - Fatigue [Unknown]
  - Blood lactate dehydrogenase increased [Unknown]
